FAERS Safety Report 25744642 (Version 1)
Quarter: 2025Q3

REPORT INFORMATION
  Report Type: Spontaneous
  Country: EU (occurrence: EU)
  Receive Date: 20250901
  Receipt Date: 20250901
  Transmission Date: 20251020
  Serious: Yes (Other)
  Sender: STRIDES
  Company Number: EU-STRIDES ARCOLAB LIMITED-2025SP010971

PATIENT
  Age: 38 Year
  Sex: Male

DRUGS (3)
  1. CABERGOLINE [Suspect]
     Active Substance: CABERGOLINE
     Indication: Prolactin-producing pituitary tumour
     Route: 065
  2. CABERGOLINE [Suspect]
     Active Substance: CABERGOLINE
     Route: 065
  3. CABERGOLINE [Suspect]
     Active Substance: CABERGOLINE
     Route: 065

REACTIONS (1)
  - Pituitary apoplexy [Recovered/Resolved]
